FAERS Safety Report 9900862 (Version 3)
Quarter: 2014Q3

REPORT INFORMATION
  Report Type: Spontaneous
  Country: US (occurrence: US)
  Receive Date: 20140211
  Receipt Date: 20140903
  Transmission Date: 20150326
  Serious: No
  Sender: FDA-Public Use
  Company Number: US-009507513-1402USA005005

PATIENT
  Sex: Female
  Weight: 98.41 kg

DRUGS (1)
  1. NUVARING [Suspect]
     Active Substance: ETHINYL ESTRADIOL\ETONOGESTREL
     Dosage: INSERT 1 RING EVERY 3 WEEKS, REMOVE RING FOR 7 DAYS THEN REPEAT
     Route: 067
     Dates: start: 20120907, end: 20121121

REACTIONS (7)
  - Drug ineffective [Unknown]
  - Hypertension [Unknown]
  - International normalised ratio abnormal [Unknown]
  - Anticoagulation drug level below therapeutic [Unknown]
  - Chest pain [Unknown]
  - Deep vein thrombosis [Unknown]
  - Peripheral swelling [Unknown]

NARRATIVE: CASE EVENT DATE: 20130131
